FAERS Safety Report 5852890-3 (Version None)
Quarter: 2008Q3

REPORT INFORMATION
  Report Type: 
  Country: None (occurrence: None)
  Receive Date: 20080821
  Receipt Date: 20080812
  Transmission Date: 20090109
  Serious: Yes (Hospitalization)
  Sender: FDA-Public Use
  Company Number: PHHY2008BR16245

PATIENT
  Age: 43 Year
  Sex: Female

DRUGS (4)
  1. PREXIGE [Suspect]
     Indication: NECK PAIN
     Dosage: 100 MG/DAY
     Route: 048
     Dates: start: 20080701
  2. VOLTAREN [Suspect]
  3. CAPTOPRIL [Concomitant]
     Dosage: 1 TAB/DAY
     Route: 048
  4. CAPTOPRIL [Concomitant]
     Dosage: 2 TAB/DAY
     Route: 048

REACTIONS (6)
  - BLOOD PRESSURE INCREASED [None]
  - DYSPNOEA [None]
  - ERYTHEMA [None]
  - FEELING HOT [None]
  - HEART RATE INCREASED [None]
  - PERIPHERAL COLDNESS [None]
